APPROVED DRUG PRODUCT: WARFARIN SODIUM
Active Ingredient: WARFARIN SODIUM
Strength: 4MG
Dosage Form/Route: TABLET;ORAL
Application: A200104 | Product #005
Applicant: AIPING PHARMACEUTICAL INC
Approved: Jun 27, 2013 | RLD: No | RS: No | Type: DISCN